FAERS Safety Report 7526621-5 (Version None)
Quarter: 2011Q2

REPORT INFORMATION
  Report Type: 
  Country: None (occurrence: None)
  Receive Date: 20110606
  Receipt Date: 20110523
  Transmission Date: 20111010
  Serious: Yes (Hospitalization)
  Sender: FDA-Public Use
  Company Number: DE-JNJFOC-20110405913

PATIENT
  Sex: Male
  Weight: 23.7 kg

DRUGS (5)
  1. REMICADE [Suspect]
     Route: 042
     Dates: start: 20110301
  2. 5-AMINOSALICYLIC ACID [Concomitant]
     Route: 048
  3. PREDNISONE [Concomitant]
     Route: 065
  4. REMICADE [Suspect]
     Indication: CROHN'S DISEASE
     Route: 042
     Dates: start: 20100528
  5. REMICADE [Suspect]
     Route: 042
     Dates: start: 20110118

REACTIONS (1)
  - GENERAL PHYSICAL HEALTH DETERIORATION [None]
